FAERS Safety Report 5476867-5 (Version None)
Quarter: 2007Q4

REPORT INFORMATION
  Report Type: 
  Country: None (occurrence: None)
  Receive Date: 20071002
  Receipt Date: 20071002
  Transmission Date: 20080405
  Serious: No
  Sender: FDA-Public Use
  Company Number: None

PATIENT
  Sex: Male
  Weight: 103.148 kg

DRUGS (2)
  1. AMLODIPINE MALEATE/ BENAZEPRIL HYDROCHLORIDE [Suspect]
     Dosage: 30 CAPS 1 DAILY BY MOUTH
     Route: 048
     Dates: start: 20070605
  2. CELEXA [Concomitant]

REACTIONS (9)
  - BLOOD PRESSURE INCREASED [None]
  - COLD SWEAT [None]
  - DIZZINESS [None]
  - DYSPNOEA [None]
  - ELECTROCARDIOGRAM CHANGE [None]
  - LETHARGY [None]
  - NAUSEA [None]
  - PERIPHERAL COLDNESS [None]
  - RASH [None]
